FAERS Safety Report 6220212-4 (Version None)
Quarter: 2009Q2

REPORT INFORMATION
  Report Type: 
  Country: None (occurrence: None)
  Receive Date: 20090605
  Receipt Date: 20090521
  Transmission Date: 20091009
  Serious: Yes (Death)
  Sender: FDA-Public Use
  Company Number: 2009S1009002

PATIENT
  Age: 83 Year
  Sex: Male

DRUGS (1)
  1. FLUTAMIN (FLUTAMIDE) [Suspect]
     Indication: METASTASIS
     Dosage: 750 MG; ORAL; DAILY
     Route: 048
     Dates: start: 20070430, end: 20071003

REACTIONS (2)
  - HEPATIC FAILURE [None]
  - RENAL FAILURE [None]
